FAERS Safety Report 10807352 (Version 1)
Quarter: 2015Q1

REPORT INFORMATION
  Report Type: Report from Study
  Country: US (occurrence: US)
  Receive Date: 20150217
  Receipt Date: 20150217
  Transmission Date: 20150721
  Serious: No
  Sender: FDA-Public Use
  Company Number: US-ABBVIE-14K-163-1210290-00

PATIENT
  Age: 70 Year
  Sex: Male

DRUGS (11)
  1. PREDNISONE. [Concomitant]
     Active Substance: PREDNISONE
     Indication: COLITIS ULCERATIVE
  2. COENZYME Q10 [Concomitant]
     Active Substance: UBIDECARENONE
     Indication: SUPPLEMENTATION THERAPY
  3. ASPIRIN. [Concomitant]
     Active Substance: ASPIRIN
     Indication: PRODUCT USED FOR UNKNOWN INDICATION
  4. LIALDA [Concomitant]
     Active Substance: MESALAMINE
     Indication: COLITIS ULCERATIVE
  5. VITAMIN D3 [Concomitant]
     Active Substance: CHOLECALCIFEROL
     Indication: PRODUCT USED FOR UNKNOWN INDICATION
  6. HUMIRA [Suspect]
     Active Substance: ADALIMUMAB
  7. NEXIUM [Concomitant]
     Active Substance: ESOMEPRAZOLE MAGNESIUM
     Indication: GASTROOESOPHAGEAL REFLUX DISEASE
  8. NOVOLOG [Concomitant]
     Active Substance: INSULIN ASPART
     Indication: DIABETES PROPHYLAXIS
     Dosage: SLIDING SCALE
  9. LANTUS [Concomitant]
     Active Substance: INSULIN GLARGINE
     Indication: DIABETES PROPHYLAXIS
     Dosage: AT BEDTIME
  10. HUMIRA [Suspect]
     Active Substance: ADALIMUMAB
     Indication: COLITIS ULCERATIVE
     Dosage: LOADING DOSE
     Dates: start: 20140304, end: 20140304
  11. METOPROLOL [Concomitant]
     Active Substance: METOPROLOL
     Indication: HYPERTENSION
     Dosage: TWICE DAILY

REACTIONS (1)
  - Injection site pain [Recovered/Resolved]

NARRATIVE: CASE EVENT DATE: 20140304
